FAERS Safety Report 20503311 (Version 5)
Quarter: 2023Q1

REPORT INFORMATION
  Report Type: Spontaneous
  Country: US (occurrence: US)
  Receive Date: 20220222
  Receipt Date: 20230301
  Transmission Date: 20230418
  Serious: Yes (Hospitalization, Other)
  Sender: FDA-Public Use
  Company Number: US-PFIZER INC-202200018952

PATIENT
  Age: 81 Year
  Sex: Male
  Weight: 62.6 kg

DRUGS (2)
  1. VYNDAMAX [Suspect]
     Active Substance: TAFAMIDIS
     Indication: Cardiac failure
     Dosage: 61 MG, 1X/DAY
     Route: 048
  2. MILRINONE [Concomitant]
     Active Substance: MILRINONE
     Indication: Cardiac disorder
     Dosage: INFUSION EVERY 48 HOURS

REACTIONS (4)
  - Dehydration [Unknown]
  - Cardiogenic shock [Unknown]
  - Body height decreased [Unknown]
  - Off label use [Unknown]

NARRATIVE: CASE EVENT DATE: 20211229
